FAERS Safety Report 14012162 (Version 2)
Quarter: 2018Q2

REPORT INFORMATION
  Report Type: Spontaneous
  Country: FR (occurrence: FR)
  Receive Date: 20170926
  Receipt Date: 20180508
  Transmission Date: 20180711
  Serious: Yes (Hospitalization)
  Sender: FDA-Public Use
  Company Number: FR-CELGENEUS-FRA-20170905764

PATIENT
  Age: 46 Year
  Sex: Female

DRUGS (1)
  1. OTEZLA [Suspect]
     Active Substance: APREMILAST
     Indication: PSORIASIS
     Dosage: 60 MILLIGRAM
     Route: 048
     Dates: start: 201611, end: 201702

REACTIONS (5)
  - Gastrointestinal disorder [Unknown]
  - Hyperthermia [Recovered/Resolved]
  - Sepsis [Unknown]
  - Headache [Unknown]
  - Furuncle [Recovered/Resolved]

NARRATIVE: CASE EVENT DATE: 201703
